FAERS Safety Report 8942350 (Version 2)
Quarter: 2013Q1

REPORT INFORMATION
  Report Type: Spontaneous
  Country: US (occurrence: None)
  Receive Date: 20121123
  Receipt Date: 20130103
  Transmission Date: 20140127
  Serious: Yes (Other)
  Sender: FDA-Public Use
  Company Number: DKLU1086475

PATIENT
  Age: 25 Year
  Sex: Female

DRUGS (1)
  1. SABRIL [Suspect]
     Indication: COMPLEX PARTIAL SEIZURES
     Route: 048
     Dates: start: 20120222

REACTIONS (7)
  - Dizziness [None]
  - Fatigue [None]
  - Initial insomnia [None]
  - Vomiting [None]
  - Drug intolerance [None]
  - Grand mal convulsion [None]
  - Status epilepticus [None]
